FAERS Safety Report 6602537-3 (Version None)
Quarter: 2010Q1

REPORT INFORMATION
  Report Type: 
  Country: None (occurrence: None)
  Receive Date: 20100217
  Receipt Date: 20100208
  Transmission Date: 20100710
  Serious: Yes (Death)
  Sender: FDA-Public Use
  Company Number: DSA_42577_2010

PATIENT
  Sex: Male

DRUGS (1)
  1. XENAZINE [Suspect]
     Indication: DRUG USE FOR UNKNOWN INDICATION
     Dosage: (43.75 MG, (DOSE: 18.75 AT LUNCH, 12.5 MG AT SUPPER AND BEDTIME) ORAL)
     Route: 048
     Dates: start: 20090201, end: 20100101

REACTIONS (1)
  - DEATH [None]
